FAERS Safety Report 14210343 (Version 2)
Quarter: 2019Q4

REPORT INFORMATION
  Report Type: Report from Study
  Country: CO (occurrence: CO)
  Receive Date: 20171121
  Receipt Date: 20191217
  Transmission Date: 20200122
  Serious: Yes (Hospitalization, Other)
  Sender: FDA-Public Use
  Company Number: CO-JNJFOC-20171120885

PATIENT
  Age: 76 Year
  Sex: Male
  Weight: 60 kg

DRUGS (2)
  1. IMBRUVICA [Suspect]
     Active Substance: IBRUTINIB
     Dosage: STARTED ON 24-NOV-2017, 3 CAPSULES DAILY
     Route: 048
  2. IMBRUVICA [Suspect]
     Active Substance: IBRUTINIB
     Indication: CHRONIC LYMPHOCYTIC LEUKAEMIA
     Route: 048
     Dates: start: 20160713, end: 20171110

REACTIONS (4)
  - Infection [Unknown]
  - Amnesia [Unknown]
  - Stoma site haemorrhage [Not Recovered/Not Resolved]
  - Rectal cancer [Recovering/Resolving]

NARRATIVE: CASE EVENT DATE: 2017
